FAERS Safety Report 5355072-7 (Version None)
Quarter: 2007Q2

REPORT INFORMATION
  Report Type: 
  Country: None (occurrence: None)
  Receive Date: 20070613
  Receipt Date: 20070601
  Transmission Date: 20071010
  Serious: Yes (Hospitalization)
  Sender: FDA-Public Use
  Company Number: PHBS2007US09503

PATIENT
  Age: 84 Year
  Sex: Female

DRUGS (11)
  1. METOPROLOL SUCCINATE [Suspect]
     Dosage: 25 MG/DAY
     Route: 048
  2. DILTIAZEM [Concomitant]
     Dosage: 120 MG/DAY
     Route: 048
  3. SIMVASTATIN [Concomitant]
     Dosage: 20 MG/DAY
     Route: 065
  4. GEMFIBROZIL [Concomitant]
     Dosage: 600 MG, BID
     Route: 065
  5. SPIRONOLACTONE [Concomitant]
     Dosage: 25 MG/DAY
     Route: 065
  6. LEVOTHYROXINE SODIUM [Concomitant]
     Dosage: 75 UG/DAY
     Route: 065
  7. ESTROGENS CONJUGATED [Concomitant]
     Dosage: 0.625 MG/DAY
     Route: 065
  8. ALPRAZOLAM [Concomitant]
     Dosage: 0.25 MG, TID
     Route: 065
  9. DONEPEZIL HCL [Concomitant]
     Dosage: 5 MG, BID
     Route: 065
  10. MEMANTINE HCL [Concomitant]
     Dosage: 10 MG, BID
     Route: 065
  11. RITALIN [Suspect]
     Indication: FATIGUE
     Route: 065

REACTIONS (22)
  - BLOOD CREATINE PHOSPHOKINASE INCREASED [None]
  - BLOOD CREATINE PHOSPHOKINASE MB INCREASED [None]
  - BRADYCARDIA [None]
  - CHEST PAIN [None]
  - CORONARY ARTERY STENOSIS [None]
  - DIZZINESS [None]
  - DYSPNOEA [None]
  - ELECTROCARDIOGRAM ST-T SEGMENT ABNORMAL [None]
  - FLUSHING [None]
  - HEART RATE DECREASED [None]
  - HYPERHIDROSIS [None]
  - HYPOTENSION [None]
  - INTRA-AORTIC BALLOON PLACEMENT [None]
  - LIFE SUPPORT [None]
  - MYOCARDIAL INFARCTION [None]
  - PERIPHERAL COLDNESS [None]
  - PRESYNCOPE [None]
  - PULMONARY OEDEMA [None]
  - RALES [None]
  - TROPONIN I INCREASED [None]
  - ULTRASONIC ANGIOGRAM ABNORMAL [None]
  - VASOSPASM [None]
